FAERS Safety Report 7473906-7 (Version None)
Quarter: 2011Q2

REPORT INFORMATION
  Report Type: 
  Country: None (occurrence: None)
  Receive Date: 20110511
  Receipt Date: 20110511
  Transmission Date: 20111010
  Serious: Yes (Life-Threatening, Hospitalization)
  Sender: FDA-Public Use
  Company Number: GB-EISAI INC-E2020-09127-SPO-GB

PATIENT
  Age: 75 Year

DRUGS (2)
  1. LEVOTHYROXINE SODIUM [Concomitant]
     Indication: HYPERTHYROIDISM
     Route: 048
  2. ARICEPT [Suspect]
     Route: 048
     Dates: start: 20110331, end: 20110427

REACTIONS (2)
  - CARDIAC TELEMETRY ABNORMAL [None]
  - BRADYCARDIA [None]
